FAERS Safety Report 10247373 (Version 2)
Quarter: 2015Q3

REPORT INFORMATION
  Report Type: Spontaneous
  Country: US (occurrence: US)
  Receive Date: 20140619
  Receipt Date: 20150717
  Transmission Date: 20151125
  Serious: Yes (Other)
  Sender: FDA-Public Use
  Company Number: US-SA-2014SA078075

PATIENT
  Age: 69 Year
  Sex: Female

DRUGS (6)
  1. ASPIRIN. [Concomitant]
     Active Substance: ASPIRIN
     Dates: start: 200207, end: 200611
  2. PLAVIX [Suspect]
     Active Substance: CLOPIDOGREL BISULFATE
     Indication: PERIPHERAL ARTERIAL OCCLUSIVE DISEASE
     Route: 048
     Dates: start: 200811, end: 201008
  3. PLAVIX [Suspect]
     Active Substance: CLOPIDOGREL BISULFATE
     Indication: STENT PLACEMENT
     Route: 048
     Dates: start: 200811, end: 201008
  4. PLAVIX [Suspect]
     Active Substance: CLOPIDOGREL BISULFATE
     Indication: PERIPHERAL ARTERIAL OCCLUSIVE DISEASE
     Route: 048
     Dates: start: 200207, end: 200611
  5. ASPIRIN. [Concomitant]
     Active Substance: ASPIRIN
     Dates: start: 200811, end: 201008
  6. PLAVIX [Suspect]
     Active Substance: CLOPIDOGREL BISULFATE
     Indication: STENT PLACEMENT
     Route: 048
     Dates: start: 200207, end: 200611

REACTIONS (4)
  - Gastrointestinal haemorrhage [Unknown]
  - Thrombotic thrombocytopenic purpura [Unknown]
  - Multiple injuries [Unknown]
  - Splenectomy [Unknown]

NARRATIVE: CASE EVENT DATE: 201008
